FAERS Safety Report 7712303-3 (Version None)
Quarter: 2011Q3

REPORT INFORMATION
  Report Type: 
  Country: None (occurrence: None)
  Receive Date: 20110826
  Receipt Date: 20110822
  Transmission Date: 20111222
  Serious: Yes (Hospitalization)
  Sender: FDA-Public Use
  Company Number: US-PFIZER INC-2011193863

PATIENT
  Sex: Female
  Weight: 53.4 kg

DRUGS (6)
  1. DOXORUBICIN HCL [Suspect]
     Indication: SARCOMA
     Dosage: 117 MG, UNK
     Route: 042
     Dates: start: 20110714
  2. AMITRIPTYLINE [Concomitant]
  3. SERTRALINE [Concomitant]
  4. MORPHINE SULFATE [Concomitant]
  5. PDGFRA [Suspect]
     Indication: SARCOMA
     Dosage: 801 MG, UNK
     Route: 042
     Dates: start: 20110714
  6. ZOLOFT [Concomitant]

REACTIONS (2)
  - FEBRILE NEUTROPENIA [None]
  - PNEUMOTHORAX [None]
